FAERS Safety Report 17515569 (Version 1)
Quarter: 2020Q1

REPORT INFORMATION
  Report Type: Spontaneous
  Country: US (occurrence: US)
  Receive Date: 20200309
  Receipt Date: 20200309
  Transmission Date: 20200409
  Serious: No
  Sender: FDA-Public Use
  Company Number: US-ASTRAZENECA-2020SE25378

PATIENT
  Sex: Female

DRUGS (2)
  1. BYDUREON BCISE [Suspect]
     Active Substance: EXENATIDE
     Indication: TYPE 2 DIABETES MELLITUS
     Route: 058
     Dates: start: 2017
  2. BYDUREON [Concomitant]
     Active Substance: EXENATIDE

REACTIONS (4)
  - Injection site nodule [Not Recovered/Not Resolved]
  - Incorrect dose administered by device [Unknown]
  - Injection site extravasation [Unknown]
  - Device leakage [Unknown]
